FAERS Safety Report 21579411 (Version 2)
Quarter: 2022Q4

REPORT INFORMATION
  Report Type: Spontaneous
  Country: US (occurrence: US)
  Receive Date: 20221110
  Receipt Date: 20221118
  Transmission Date: 20230112
  Serious: No
  Sender: FDA-Public Use
  Company Number: US-JNJFOC-20221108414

PATIENT
  Age: 51 Year
  Sex: Female
  Weight: 90.72 kg

DRUGS (1)
  1. TOPIRAMATE [Suspect]
     Active Substance: TOPIRAMATE
     Indication: Migraine
     Route: 048

REACTIONS (1)
  - Drug ineffective [Unknown]
